FAERS Safety Report 21170487 (Version 10)
Quarter: 2023Q4

REPORT INFORMATION
  Report Type: Other
  Country: DE (occurrence: None)
  Receive Date: 20220804
  Receipt Date: 20231115
  Transmission Date: 20240110
  Serious: Yes (Hospitalization, Other)
  Sender: FDA-Public Use
  Company Number: DE-ROCHE-2564266

PATIENT
  Age: 49 Year
  Sex: Female
  Weight: 68.5 kg

DRUGS (14)
  1. OCREVUS [Suspect]
     Active Substance: OCRELIZUMAB
     Indication: Relapsing-remitting multiple sclerosis
     Dosage: 300 MG 161 DAYS
     Route: 042
     Dates: start: 20200211
  2. OCREVUS [Suspect]
     Active Substance: OCRELIZUMAB
     Route: 042
     Dates: start: 20200224
  3. OCREVUS [Suspect]
     Active Substance: OCRELIZUMAB
     Route: 042
     Dates: start: 20210218
  4. OCREVUS [Suspect]
     Active Substance: OCRELIZUMAB
     Route: 042
     Dates: start: 20210819
  5. OCREVUS [Suspect]
     Active Substance: OCRELIZUMAB
     Dosage: FLOW RATE OF ONE HOUR
     Route: 042
     Dates: start: 20210823
  6. OCREVUS [Suspect]
     Active Substance: OCRELIZUMAB
     Route: 042
  7. OCREVUS [Suspect]
     Active Substance: OCRELIZUMAB
     Route: 042
  8. OCREVUS [Suspect]
     Active Substance: OCRELIZUMAB
     Dosage: 300 MG OCREVUS EVERY 5 MONTHS (MOST RECENTLY ON 22-MAR-2023)
     Route: 042
     Dates: start: 20230322
  9. CORTISONE [Suspect]
     Active Substance: CORTISONE
     Indication: Product used for unknown indication
     Route: 065
     Dates: start: 20200211
  10. ASPIRIN [Concomitant]
     Active Substance: ASPIRIN
  11. IBUPROFEN [Concomitant]
     Active Substance: IBUPROFEN
  12. NABIXIMOLS [Concomitant]
     Active Substance: NABIXIMOLS
  13. PANTOPRAZOLE SODIUM [Concomitant]
     Active Substance: PANTOPRAZOLE SODIUM
  14. HEPARIN [Concomitant]
     Active Substance: HEPARIN SODIUM

REACTIONS (30)
  - Breast cyst [Recovered/Resolved]
  - Muscle spasticity [Not Recovered/Not Resolved]
  - White blood cell count decreased [Not Recovered/Not Resolved]
  - Nausea [Recovered/Resolved]
  - Renal disorder [Recovered/Resolved]
  - Headache [Recovered/Resolved]
  - Weight increased [Recovered/Resolved]
  - Lymphocyte count decreased [Recovering/Resolving]
  - Gait disturbance [Not Recovered/Not Resolved]
  - Muscular weakness [Not Recovered/Not Resolved]
  - Cognitive disorder [Not Recovered/Not Resolved]
  - Headache [Recovered/Resolved]
  - Myalgia [Recovered/Resolved]
  - Incorrect dose administered [Unknown]
  - Incorrect drug administration rate [Unknown]
  - Phlebitis [Recovered/Resolved]
  - Cardiovascular disorder [Recovered/Resolved]
  - Fatigue [Recovered/Resolved]
  - Dizziness [Recovering/Resolving]
  - Muscle spasms [Not Recovered/Not Resolved]
  - Foot deformity [Not Recovered/Not Resolved]
  - COVID-19 [Recovered/Resolved]
  - Multiple sclerosis [Recovered/Resolved]
  - Tremor [Not Recovered/Not Resolved]
  - Vertigo [Not Recovered/Not Resolved]
  - Diarrhoea [Recovered/Resolved]
  - Vomiting [Recovered/Resolved]
  - Abnormal loss of weight [Not Recovered/Not Resolved]
  - Laryngitis [Recovered/Resolved]
  - Pyrexia [Recovered/Resolved]

NARRATIVE: CASE EVENT DATE: 20200211
